FAERS Safety Report 6804127-6 (Version None)
Quarter: 2010Q2

REPORT INFORMATION
  Report Type: 
  Country: None (occurrence: None)
  Receive Date: 20100628
  Receipt Date: 20070425
  Transmission Date: 20101027
  Serious: No
  Sender: FDA-Public Use
  Company Number: US-PFIZER INC-2006070774

PATIENT
  Sex: Female
  Weight: 33.57 kg

DRUGS (2)
  1. GENOTROPIN [Suspect]
     Indication: SMALL FOR DATES BABY
     Route: 058
     Dates: start: 20010701
  2. SINGULAIR ^DIECKMANN^ [Concomitant]
     Route: 065

REACTIONS (6)
  - ARTHRALGIA [None]
  - GROIN PAIN [None]
  - MUSCULOSKELETAL PAIN [None]
  - MYALGIA [None]
  - NECK PAIN [None]
  - PAIN IN EXTREMITY [None]
